FAERS Safety Report 4461998-9 (Version None)
Quarter: 2004Q3

REPORT INFORMATION
  Report Type: 
  Country: None (occurrence: None)
  Receive Date: 20040924
  Receipt Date: 20040915
  Transmission Date: 20050211
  Serious: Yes (Life-Threatening, Hospitalization, Disabling, Other)
  Sender: FDA-Public Use
  Company Number: 2004-09-0943

PATIENT
  Age: 17 Year
  Sex: Female

DRUGS (1)
  1. TEMODAL [Suspect]
     Indication: ASTROCYTOMA
     Dosage: 200 MG/M^2 ORAL; 4 CYCLE (S)
     Route: 048

REACTIONS (2)
  - CEREBRAL ISCHAEMIA [None]
  - GENERAL PHYSICAL HEALTH DETERIORATION [None]
